FAERS Safety Report 4686048-0 (Version None)
Quarter: 2005Q2

REPORT INFORMATION
  Report Type: 
  Country: None (occurrence: None)
  Receive Date: 20050609
  Receipt Date: 20050606
  Transmission Date: 20051028
  Serious: Yes (Death)
  Sender: FDA-Public Use
  Company Number: DE-BRISTOL-MYERS SQUIBB COMPANY-12994737

PATIENT
  Age: 45 Year
  Sex: Female

DRUGS (6)
  1. CISPLATIN [Suspect]
     Indication: SMALL CELL LUNG CANCER STAGE UNSPECIFIED
     Route: 042
     Dates: start: 20050525, end: 20050525
  2. ETOPOSIDE [Suspect]
     Indication: SMALL CELL LUNG CANCER STAGE UNSPECIFIED
     Route: 042
     Dates: start: 20050525, end: 20050525
  3. INSULIN [Concomitant]
  4. FELODIPINE [Concomitant]
  5. TAVANIC [Concomitant]
  6. DIPIDOLOR [Concomitant]

REACTIONS (3)
  - BLOOD CORTISOL INCREASED [None]
  - HYPOVOLAEMIA [None]
  - SHOCK HAEMORRHAGIC [None]
